FAERS Safety Report 6123319-5 (Version None)
Quarter: 2009Q1

REPORT INFORMATION
  Report Type: 
  Country: None (occurrence: None)
  Receive Date: 20090318
  Receipt Date: 20090310
  Transmission Date: 20090719
  Serious: Yes (Hospitalization)
  Sender: FDA-Public Use
  Company Number: AU-ABBOTT-09P-008-0561782-00

PATIENT
  Sex: Female

DRUGS (4)
  1. LIPIDIL [Suspect]
     Indication: METABOLIC DISORDER
     Dosage: 145 MG 1IN1D
     Route: 048
     Dates: start: 20080917, end: 20081007
  2. DIDRONEL [Concomitant]
     Indication: DRUG USE FOR UNKNOWN INDICATION
  3. EUTROXSIG [Concomitant]
     Indication: DRUG USE FOR UNKNOWN INDICATION
  4. LASIX [Concomitant]
     Indication: DRUG USE FOR UNKNOWN INDICATION

REACTIONS (3)
  - MYALGIA [None]
  - OEDEMA PERIPHERAL [None]
  - SWELLING FACE [None]
